FAERS Safety Report 24549093 (Version 1)
Quarter: 2024Q4

REPORT INFORMATION
  Report Type: Spontaneous
  Country: CA (occurrence: CA)
  Receive Date: 20241025
  Receipt Date: 20241025
  Transmission Date: 20250115
  Serious: Yes (Disabling)
  Sender: CHEPLAPHARM
  Company Number: CA-CHEPLA-2024013321

PATIENT
  Age: 51 Year
  Sex: Female
  Weight: 64 kg

DRUGS (1)
  1. OLANZAPINE [Suspect]
     Active Substance: OLANZAPINE
     Indication: Generalised anxiety disorder
     Dosage: 1 DOSAGE FORM, DAILY?DAILY DOSE: 1 DOSAGE FORM
     Route: 048

REACTIONS (5)
  - Muscle tightness [Recovered/Resolved]
  - Muscle twitching [Recovered/Resolved]
  - Tardive dyskinesia [Recovered/Resolved]
  - Product substitution issue [Unknown]
  - Off label use [Unknown]
